FAERS Safety Report 8520277-0 (Version None)
Quarter: 2012Q3

REPORT INFORMATION
  Report Type: 
  Country: None (occurrence: None)
  Receive Date: 20120719
  Receipt Date: 20120704
  Transmission Date: 20120928
  Serious: No
  Sender: FDA-Public Use
  Company Number: GB-009507513-1207GBR001950

PATIENT

DRUGS (1)
  1. PROPECIA [Suspect]
     Indication: ALOPECIA
     Dosage: 1 MG, QD
     Route: 048
     Dates: start: 20110901, end: 20120523

REACTIONS (4)
  - SOCIAL PROBLEM [None]
  - LIBIDO DECREASED [None]
  - MENTAL DISORDER [None]
  - GYNAECOMASTIA [None]
